FAERS Safety Report 4333027-9 (Version None)
Quarter: 2004Q1

REPORT INFORMATION
  Report Type: 
  Country: None (occurrence: None)
  Receive Date: 20040330
  Receipt Date: 20040316
  Transmission Date: 20041129
  Serious: Yes (Hospitalization)
  Sender: FDA-Public Use
  Company Number: 2004204065JP

PATIENT
  Age: 5 Year
  Sex: Male
  Weight: 91.6 kg

DRUGS (3)
  1. GENOTROPIN [Suspect]
     Indication: SMALL FOR DATES BABY
     Dosage: 0.067 MG/KG, DAILY, SUBCUTANEOUS
     Route: 058
     Dates: start: 20020315
  2. THEO-DUR [Concomitant]
  3. BECOTIDE (BECLOMETASONE DIPROPIONATE) [Concomitant]

REACTIONS (2)
  - GASTROENTERITIS [None]
  - PYREXIA [None]
